FAERS Safety Report 7776952-9 (Version None)
Quarter: 2011Q3

REPORT INFORMATION
  Report Type: 
  Country: None (occurrence: None)
  Receive Date: 20110926
  Receipt Date: 20110915
  Transmission Date: 20111222
  Serious: Yes (Death, Other)
  Sender: FDA-Public Use
  Company Number: JP-CELGENEUS-087-CCAZA-11092705

PATIENT
  Sex: Female

DRUGS (31)
  1. EXJADE [Concomitant]
     Dosage: 20 GRAM
     Route: 048
     Dates: end: 20110624
  2. GRANISETRON HYDROCHLORIDE [Concomitant]
     Dosage: 3 MILLIGRAM
     Route: 041
     Dates: start: 20110506, end: 20110512
  3. GRANISETRON HYDROCHLORIDE [Concomitant]
     Dosage: 3 MILLIGRAM
     Route: 041
     Dates: start: 20110620, end: 20110624
  4. CLARITHROMYCIN [Concomitant]
     Dosage: 400 MILLIGRAM
     Route: 048
     Dates: end: 20110626
  5. MEROPENEM [Concomitant]
     Dosage: .5 GRAM
     Route: 048
     Dates: start: 20110603, end: 20110616
  6. SODIUM BICARBONATE [Concomitant]
     Dosage: 250 MILLILITER
     Route: 041
     Dates: start: 20110624, end: 20110624
  7. VIDAZA [Suspect]
     Dosage: 33 MILLIGRAM
     Route: 058
     Dates: start: 20110620, end: 20110624
  8. ITRACONAZOLE [Concomitant]
     Dosage: 100 MILLIGRAM
     Route: 048
     Dates: start: 20110325, end: 20110626
  9. SCOPOLAMINE [Concomitant]
     Dosage: 20 MILLIGRAM
     Route: 041
     Dates: start: 20110626, end: 20110626
  10. VIDAZA [Suspect]
     Dosage: 75 MILLIGRAM/SQ. METER
     Route: 058
     Dates: start: 20110506, end: 20110512
  11. AMLODIPINE BESYLATE [Concomitant]
     Dosage: 5 MILLIGRAM
     Route: 048
     Dates: end: 20110626
  12. LIPIDIL [Concomitant]
     Dosage: 100 MILLIGRAM
     Route: 048
     Dates: end: 20110624
  13. ALLOPURINOL [Concomitant]
     Dosage: 100 MILLIGRAM
     Route: 048
     Dates: end: 20110626
  14. MOTILIUM [Concomitant]
     Dosage: 30 MILLIGRAM
     Route: 065
  15. VANCOMYCIN HYCHLORIDE [Concomitant]
     Dosage: 1 GRAM
     Route: 041
     Dates: start: 20110627, end: 20110627
  16. GRANISETRON HYDROCHLORIDE [Concomitant]
     Dosage: 3 MILLIGRAM
     Route: 041
     Dates: start: 20110407, end: 20110413
  17. METHYLPREDNISOLONE SODIUM SUCCINATE [Concomitant]
     Dosage: 125 MILLIGRAM
     Route: 065
     Dates: start: 20110624, end: 20110627
  18. OMEPRAZOLE [Concomitant]
     Dosage: 20 MILLIGRAM
     Route: 041
     Dates: start: 20110626, end: 20110626
  19. VIDAZA [Suspect]
     Route: 058
     Dates: start: 20110407, end: 20110413
  20. METHYCOBAL [Concomitant]
     Dosage: 1500 MILLIGRAM
     Route: 048
     Dates: end: 20110624
  21. SULFAMETHOXAZOLE [Concomitant]
     Dosage: 1 DOSAGE FORMS
     Route: 065
     Dates: end: 20110626
  22. STOMARCON [Concomitant]
     Dosage: 20 MILLIGRAM
     Route: 048
  23. LEUKOPROL [Concomitant]
     Dosage: 8000000 IU (INTERNATIONAL UNIT)
     Route: 041
     Dates: start: 20110620, end: 20110624
  24. DESFERAL [Concomitant]
     Dosage: 500 MILLIGRAM
     Route: 041
     Dates: end: 20110624
  25. LEVOFLOXACIN [Concomitant]
     Dosage: 500 MILLIGRAM
     Route: 048
     Dates: end: 20110626
  26. DIOVAN [Concomitant]
     Dosage: 80 MILLIGRAM
     Route: 048
     Dates: end: 20110626
  27. LEVOTHYROXINE SODIUM [Concomitant]
     Dosage: 150 MILLIGRAM
     Route: 048
     Dates: end: 20110626
  28. OXATOMIDE [Concomitant]
     Dosage: 30 MILLIGRAM
     Route: 048
  29. ELNEOPA NO. 2 [Concomitant]
     Dosage: 100 MILLILITER
     Route: 041
     Dates: start: 20110619, end: 20110627
  30. SANDOGLOBULIN [Concomitant]
     Dosage: 1 GRAM
     Route: 041
     Dates: start: 20110604, end: 20110606
  31. AMIKACIN SULFATE [Concomitant]
     Dosage: 400 MILLIGRAM
     Route: 041
     Dates: start: 20110604, end: 20110613

REACTIONS (4)
  - GENITAL HAEMORRHAGE [None]
  - INFECTION [None]
  - SKIN INDURATION [None]
  - DEPRESSED LEVEL OF CONSCIOUSNESS [None]
